FAERS Safety Report 7641787-4 (Version None)
Quarter: 2011Q3

REPORT INFORMATION
  Report Type: 
  Country: None (occurrence: None)
  Receive Date: 20110728
  Receipt Date: 20110720
  Transmission Date: 20111222
  Serious: Yes (Hospitalization, Other)
  Sender: FDA-Public Use
  Company Number: US-JNJFOC-20110709538

PATIENT

DRUGS (7)
  1. INVEGA SUSTENNA [Suspect]
     Route: 030
     Dates: start: 20110525
  2. INVEGA SUSTENNA [Suspect]
     Indication: PRODUCT USED FOR UNKNOWN INDICATION
     Route: 030
     Dates: start: 20110420
  3. INVEGA SUSTENNA [Suspect]
     Route: 030
     Dates: start: 20110426
  4. INVEGA SUSTENNA [Suspect]
     Route: 030
  5. INVEGA SUSTENNA [Suspect]
     Route: 030
     Dates: start: 20110604
  6. INVEGA SUSTENNA [Suspect]
     Route: 030
     Dates: start: 20110523
  7. INVEGA [Concomitant]
     Route: 048
     Dates: start: 20110413

REACTIONS (2)
  - HOSPITALISATION [None]
  - DRUG DOSE OMISSION [None]
